FAERS Safety Report 24252467 (Version 1)
Quarter: 2024Q3

REPORT INFORMATION
  Report Type: Report from Study
  Country: RO (occurrence: RO)
  Receive Date: 20240827
  Receipt Date: 20240827
  Transmission Date: 20241017
  Serious: Yes (Other)
  Sender: AMGEN
  Company Number: RO-AMGEN-ROUSL2024152976

PATIENT
  Age: 69 Year
  Sex: Male

DRUGS (1)
  1. VECTIBIX [Suspect]
     Active Substance: PANITUMUMAB
     Indication: Product used for unknown indication
     Dosage: UNK
     Route: 065

REACTIONS (2)
  - Erythema multiforme [Unknown]
  - Acne [Unknown]

NARRATIVE: CASE EVENT DATE: 20240101
